FAERS Safety Report 7817425-4 (Version None)
Quarter: 2011Q4

REPORT INFORMATION
  Report Type: 
  Country: None (occurrence: None)
  Receive Date: 20111012
  Receipt Date: 20110928
  Transmission Date: 20120403
  Serious: Yes (Life-Threatening, Hospitalization, Other)
  Sender: FDA-Public Use
  Company Number: LTI2011A00170

PATIENT
  Age: 69 Year
  Sex: Male

DRUGS (1)
  1. PIOGLITAZONE HYDROCHLORIDE AND METFORMIN HYDROCHLORIDE [Suspect]
     Indication: TYPE 2 DIABETES MELLITUS
     Dosage: 2 TAB. (1 TAB., 2 IN 1 D)
     Dates: start: 20070204, end: 20110325

REACTIONS (2)
  - HAEMATURIA [None]
  - BLADDER TRANSITIONAL CELL CARCINOMA [None]
